FAERS Safety Report 13687107 (Version 1)
Quarter: 2017Q2

REPORT INFORMATION
  Report Type: Spontaneous
  Country: HR (occurrence: HR)
  Receive Date: 20170623
  Receipt Date: 20170623
  Transmission Date: 20170830
  Serious: Yes (Other)
  Sender: FDA-Public Use
  Company Number: HR-AKRON, INC.-2022465

PATIENT
  Sex: Female

DRUGS (1)
  1. COSOPT [Suspect]
     Active Substance: DORZOLAMIDE HYDROCHLORIDE\TIMOLOL MALEATE
     Indication: GLAUCOMA
     Route: 047

REACTIONS (4)
  - Hypoaesthesia [Unknown]
  - Blindness [Unknown]
  - Dizziness [Unknown]
  - Poisoning [Unknown]

NARRATIVE: CASE EVENT DATE: 20170529
